FAERS Safety Report 13807632 (Version 3)
Quarter: 2017Q3

REPORT INFORMATION
  Report Type: Report from Study
  Country: IT (occurrence: IT)
  Receive Date: 20170728
  Receipt Date: 20170816
  Transmission Date: 20171127
  Serious: Yes (Hospitalization)
  Sender: FDA-Public Use
  Company Number: IT-TEVA-790979ACC

PATIENT
  Age: 41 Year
  Sex: Female

DRUGS (4)
  1. METADOXIL - 500 MG COMPRESSE LABORATORI BALDACCI S.P.A. [Suspect]
     Active Substance: METADOXINE
     Indication: DRUG USE DISORDER
     Dosage: 1 DF TOTAL
     Route: 048
     Dates: start: 20170621, end: 20170621
  2. KETOPROFEN LYSINE [Suspect]
     Active Substance: KETOPROFEN LYSINE
     Indication: DRUG USE DISORDER
     Dosage: 1 DF TOTAL
     Route: 048
     Dates: start: 20170621, end: 20170621
  3. TACHIPIRINA - 500 MG COMPRESSE [Suspect]
     Active Substance: ACETAMINOPHEN
     Indication: DRUG USE DISORDER
     Dosage: 1 DF TOTAL
     Route: 048
     Dates: start: 20170621, end: 20170621
  4. QUENTIAX - 25 MG COMPRESSE RIVESTITE CON FILM - KRKA D.D. NOVO MESTO [Suspect]
     Active Substance: QUETIAPINE FUMARATE
     Indication: DRUG USE DISORDER
     Dosage: 1 DF TOTAL
     Route: 048
     Dates: start: 20170621, end: 20170621

REACTIONS (2)
  - Drug abuse [Recovered/Resolved]
  - Coma [Recovered/Resolved]

NARRATIVE: CASE EVENT DATE: 20170621
